FAERS Safety Report 8760082 (Version 2)
Quarter: 2012Q4

REPORT INFORMATION
  Report Type: Report from Study
  Country: CA (occurrence: CA)
  Receive Date: 20120829
  Receipt Date: 20120831
  Transmission Date: 20130627
  Serious: Yes (Other)
  Sender: FDA-Public Use
  Company Number: CA-ABBOTT-12P-028-0971669-00

PATIENT
  Sex: Female
  Weight: 105 kg

DRUGS (1)
  1. HUMIRA 40 MG/ 0.8 ML PRE-FILLED SYRINGE [Suspect]
     Indication: CROHN^S DISEASE
     Route: 065
     Dates: start: 20080514

REACTIONS (2)
  - Pancreatic neuroendocrine tumour [Not Recovered/Not Resolved]
  - Irritable bowel syndrome [Unknown]
